FAERS Safety Report 7979175-3 (Version None)
Quarter: 2011Q4

REPORT INFORMATION
  Report Type: 
  Country: None (occurrence: None)
  Receive Date: 20111206
  Receipt Date: 20111122
  Transmission Date: 20120403
  Serious: Yes (Life-Threatening, Hospitalization)
  Sender: FDA-Public Use
  Company Number: US-1188576

PATIENT
  Age: 53 Year
  Sex: Female
  Weight: 53.5244 kg

DRUGS (1)
  1. CYCLOGYL [Suspect]
     Indication: MYDRIASIS
     Dosage: (1 GTT QD OU OPHTHALMIC)
     Route: 047
     Dates: start: 19700101

REACTIONS (2)
  - CEREBROVASCULAR ACCIDENT [None]
  - CARDIAC FAILURE [None]
